FAERS Safety Report 18383086 (Version 1)
Quarter: 2020Q4

REPORT INFORMATION
  Report Type: Spontaneous
  Country: US (occurrence: US)
  Receive Date: 20201014
  Receipt Date: 20201014
  Transmission Date: 20210114
  Serious: Yes (Hospitalization)
  Sender: FDA-Public Use
  Company Number: None

PATIENT
  Age: 53 Year
  Sex: Female

DRUGS (9)
  1. AMBRISENTAN [Suspect]
     Active Substance: AMBRISENTAN
     Indication: PULMONARY ARTERIAL HYPERTENSION
     Route: 048
     Dates: start: 20200102
  2. ELIQUIS [Concomitant]
     Active Substance: APIXABAN
  3. VITAMIN D [Concomitant]
     Active Substance: VITAMIN D NOS
  4. METOLAZONE. [Concomitant]
     Active Substance: METOLAZONE
  5. OXYCODONE [Concomitant]
     Active Substance: OXYCODONE
  6. WARFARIN [Concomitant]
     Active Substance: WARFARIN
  7. ADEMPAS [Concomitant]
     Active Substance: RIOCIGUAT
  8. AMLODIPINE [Concomitant]
     Active Substance: AMLODIPINE BESYLATE
  9. GABAPENTIN. [Concomitant]
     Active Substance: GABAPENTIN

REACTIONS (1)
  - Leukaemia [None]
